FAERS Safety Report 7887834-6 (Version None)
Quarter: 2011Q4

REPORT INFORMATION
  Report Type: 
  Country: None (occurrence: None)
  Receive Date: 20111102
  Receipt Date: 20111102
  Transmission Date: 20120403
  Serious: No
  Sender: FDA-Public Use
  Company Number: None

PATIENT
  Sex: Male
  Weight: 125 kg

DRUGS (1)
  1. PRADAXA [Suspect]
     Indication: ATRIAL FIBRILLATION
     Dosage: 75 MG 1 PER DAY BY MOUTH
     Route: 048
     Dates: start: 20110701, end: 20111001

REACTIONS (3)
  - EYE SWELLING [None]
  - URTICARIA [None]
  - RASH PRURITIC [None]
